FAERS Safety Report 6496263-1 (Version None)
Quarter: 2009Q4

REPORT INFORMATION
  Report Type: 
  Country: None (occurrence: None)
  Receive Date: 20091210
  Receipt Date: 20091125
  Transmission Date: 20100525
  Serious: Yes (Hospitalization)
  Sender: FDA-Public Use
  Company Number: PAR_03276_2009

PATIENT
  Age: 63 Year
  Sex: Male

DRUGS (15)
  1. IBUPROFEN [Suspect]
     Indication: DRUG USE FOR UNKNOWN INDICATION
     Dosage: (400 MG TID ORAL)
     Route: 048
     Dates: start: 20090420, end: 20090602
  2. PREDNISOLONE (PREDNISOLONE) [Suspect]
     Indication: DRUG USE FOR UNKNOWN INDICATION
     Dosage: (DF)
  3. CP-751871 [Concomitant]
  4. CYCLIZINE [Concomitant]
  5. DIAZEPAM [Concomitant]
  6. OMEPRAZOLE [Concomitant]
  7. OXYCODONE [Concomitant]
  8. OXYCONTIN [Concomitant]
  9. ADCAL /00056901/ [Concomitant]
  10. ATENOLOL [Concomitant]
  11. LACTULOSE [Concomitant]
  12. SENNA-MINT WAF [Concomitant]
  13. FRAGMIN /01708302/ [Concomitant]
  14. ALENDRONATE SODIUM [Concomitant]
  15. MOVICOL /01053601/ [Concomitant]

REACTIONS (9)
  - ASTHENIA [None]
  - DECREASED APPETITE [None]
  - DEHYDRATION [None]
  - FATIGUE [None]
  - HYPOPHAGIA [None]
  - MUCOSAL DRYNESS [None]
  - NAUSEA [None]
  - PALLOR [None]
  - RENAL FAILURE ACUTE [None]
